FAERS Safety Report 24683640 (Version 2)
Quarter: 2024Q4

REPORT INFORMATION
  Report Type: Spontaneous
  Country: CN (occurrence: CN)
  Receive Date: 20241202
  Receipt Date: 20241205
  Transmission Date: 20250115
  Serious: Yes (Death)
  Sender: BEIGENE
  Company Number: CN-BEIGENE-BGN-2024-019395

PATIENT

DRUGS (12)
  1. TISLELIZUMAB [Suspect]
     Active Substance: TISLELIZUMAB
     Indication: Adenocarcinoma gastric
     Dosage: 200 MILLIGRAM, Q3WK
     Dates: start: 20220723
  2. TISLELIZUMAB [Suspect]
     Active Substance: TISLELIZUMAB
     Dosage: 200 MILLIGRAM, Q3WK
     Dates: start: 20220818
  3. TISLELIZUMAB [Suspect]
     Active Substance: TISLELIZUMAB
     Dosage: 200 MILLIGRAM, Q3WK
     Dates: start: 20220910
  4. CATEQUENTINIB [Concomitant]
     Active Substance: CATEQUENTINIB
     Indication: Adenocarcinoma gastric
     Dosage: 8 MILLIGRAM, Q3WK, D1-14
     Route: 048
     Dates: start: 20220723
  5. CATEQUENTINIB [Concomitant]
     Active Substance: CATEQUENTINIB
     Dosage: 8 MILLIGRAM, Q3WK, D1-14
     Route: 048
     Dates: start: 20220818
  6. CATEQUENTINIB [Concomitant]
     Active Substance: CATEQUENTINIB
     Dosage: 8 MILLIGRAM, Q3WK, D1-14
     Route: 048
     Dates: start: 20220910
  7. CAPECITABINE [Concomitant]
     Active Substance: CAPECITABINE
     Indication: Adenocarcinoma gastric
     Dosage: 1500 MILLIGRAM, BID, D1-14, Q3WK
     Dates: start: 20220723
  8. CAPECITABINE [Concomitant]
     Active Substance: CAPECITABINE
     Dosage: 1500 MILLIGRAM, BID, D1-14, Q3WK
     Dates: start: 20220818
  9. CAPECITABINE [Concomitant]
     Active Substance: CAPECITABINE
     Dosage: 1500 MILLIGRAM, BID, D1-14, Q3WK
     Dates: start: 20220910
  10. OXALIPLATIN [Concomitant]
     Active Substance: OXALIPLATIN
     Indication: Adenocarcinoma gastric
     Dosage: 200 MILLIGRAM, Q3WK
     Dates: start: 20220723
  11. OXALIPLATIN [Concomitant]
     Active Substance: OXALIPLATIN
     Dosage: 200 MILLIGRAM, Q3WK
     Dates: start: 20220818
  12. OXALIPLATIN [Concomitant]
     Active Substance: OXALIPLATIN
     Dosage: 200 MILLIGRAM, Q3WK
     Dates: start: 20220910

REACTIONS (1)
  - Cytokine release syndrome [Fatal]
